FAERS Safety Report 5453770-8 (Version None)
Quarter: 2007Q3

REPORT INFORMATION
  Report Type: 
  Country: None (occurrence: None)
  Receive Date: 20070917
  Receipt Date: 20070910
  Transmission Date: 20080115
  Serious: Yes (Life-Threatening)
  Sender: FDA-Public Use
  Company Number: KR-BRACCO-BRO-012043

PATIENT
  Age: 55 Year
  Sex: Female

DRUGS (1)
  1. MULTIHANCE [Suspect]
     Indication: MAGNETIC RESONANCE CHOLANGIOPANCREATOGRAPHY
     Route: 042
     Dates: start: 20070903, end: 20070903

REACTIONS (4)
  - CARDIAC ARREST [None]
  - LOSS OF CONSCIOUSNESS [None]
  - VISCERAL PAIN [None]
  - VOMITING [None]
